FAERS Safety Report 4445303-X (Version None)
Quarter: 2004Q3

REPORT INFORMATION
  Report Type: 
  Country: None (occurrence: None)
  Receive Date: 20040730
  Receipt Date: 20040604
  Transmission Date: 20050211
  Serious: No
  Sender: FDA-Public Use
  Company Number: PHEH2004US01645

PATIENT
  Age: 79 Year
  Sex: Male
  Weight: 95.2 kg

DRUGS (5)
  1. GLEEVEC [Suspect]
     Indication: CHRONIC MYELOID LEUKAEMIA
     Dosage: 100 MG, TID, ORAL
     Route: 048
     Dates: start: 20031201
  2. ALLOPURINOL [Concomitant]
  3. COUMADIN [Concomitant]
  4. TOPROL-XL [Concomitant]
  5. LASIX [Concomitant]

REACTIONS (3)
  - LOCALISED OSTEOARTHRITIS [None]
  - OEDEMA [None]
  - PAIN IN EXTREMITY [None]
